FAERS Safety Report 13510072 (Version 2)
Quarter: 2017Q2

REPORT INFORMATION
  Report Type: Report from Study
  Country: CZ (occurrence: CZ)
  Receive Date: 20170503
  Receipt Date: 20170516
  Transmission Date: 20170830
  Serious: Yes (Hospitalization)
  Sender: FDA-Public Use
  Company Number: CZ-JNJFOC-20170429631

PATIENT
  Age: 40 Year
  Sex: Male
  Weight: 105 kg

DRUGS (8)
  1. SIMPONI [Suspect]
     Active Substance: GOLIMUMAB
     Indication: ANKYLOSING SPONDYLITIS
     Route: 058
     Dates: start: 20170115
  2. OMEPRAZOLE. [Concomitant]
     Active Substance: OMEPRAZOLE
     Route: 065
  3. RISENDROS [Concomitant]
     Indication: OSTEOPOROSIS
     Route: 065
     Dates: start: 201410
  4. NITRENDIPINE [Concomitant]
     Active Substance: NITRENDIPINE
     Indication: HYPERTENSION
     Route: 065
  5. ARCOXIA [Concomitant]
     Active Substance: ETORICOXIB
     Indication: ANKYLOSING SPONDYLITIS
     Route: 065
     Dates: start: 201411
  6. CALCICHEW D3 [Concomitant]
     Active Substance: CALCIUM\CHOLECALCIFEROL
     Route: 065
  7. VIGANTOL [Concomitant]
     Active Substance: CHOLECALCIFEROL
     Dosage: GTT
     Route: 065
  8. ZALDIAR [Concomitant]
     Active Substance: ACETAMINOPHEN\TRAMADOL HYDROCHLORIDE
     Dosage: PRN
     Route: 065

REACTIONS (1)
  - Urosepsis [Recovered/Resolved]

NARRATIVE: CASE EVENT DATE: 20170404
